FAERS Safety Report 5752546-1 (Version None)
Quarter: 2008Q2

REPORT INFORMATION
  Report Type: 
  Country: None (occurrence: None)
  Receive Date: 20080527
  Receipt Date: 20080527
  Transmission Date: 20081010
  Serious: Yes (Life-Threatening)
  Sender: FDA-Public Use
  Company Number: None

PATIENT
  Age: 57 Year
  Sex: Male
  Weight: 81.6475 kg

DRUGS (1)
  1. DIGOXIN [Suspect]
     Indication: ARRHYTHMIA
     Dosage: ONE DAILY PO
     Route: 048
     Dates: start: 20070101, end: 20080507

REACTIONS (11)
  - ABDOMINAL PAIN UPPER [None]
  - CHOLECYSTECTOMY [None]
  - DIARRHOEA [None]
  - GENERAL PHYSICAL HEALTH DETERIORATION [None]
  - HALLUCINATIONS, MIXED [None]
  - HYPOTENSION [None]
  - MALAISE [None]
  - NAUSEA [None]
  - ORAL INTAKE REDUCED [None]
  - PERFORMANCE STATUS DECREASED [None]
  - WEIGHT DECREASED [None]
